FAERS Safety Report 7343228-3 (Version None)
Quarter: 2011Q1

REPORT INFORMATION
  Report Type: 
  Country: None (occurrence: None)
  Receive Date: 20110310
  Receipt Date: 20110303
  Transmission Date: 20110831
  Serious: Yes (Other)
  Sender: FDA-Public Use
  Company Number: US-SOLVAY-00211000954

PATIENT
  Age: 23590 Day
  Sex: Female

DRUGS (3)
  1. CREON [Suspect]
     Dosage: DAILY DOSE: 12,000 UNITES, 3 CAPSULES, TID
     Route: 048
     Dates: start: 20110117, end: 20110124
  2. CREON [Suspect]
     Dosage: DAILY DOSE: 12,000 UNITES, 3 CAPSULES, TID (DIFFERENT PHARMACY BOTTLE)
     Route: 048
     Dates: start: 20110124
  3. CREON [Suspect]
     Indication: PRODUCT USED FOR UNKNOWN INDICATION
     Dosage: CREON 12000 LIPASE UNITS: DAILY DOSE:  UNKNOWN
     Route: 065

REACTIONS (1)
  - PANCREATITIS ACUTE [None]
